FAERS Safety Report 6311176-3 (Version None)
Quarter: 2009Q3

REPORT INFORMATION
  Report Type: 
  Country: None (occurrence: None)
  Receive Date: 20090817
  Receipt Date: 20090803
  Transmission Date: 20100115
  Serious: Yes (Other)
  Sender: FDA-Public Use
  Company Number: GB-ROCHE-648881

PATIENT
  Age: 2 Year
  Sex: Male

DRUGS (3)
  1. TAMIFLU [Suspect]
     Indication: DRUG USE FOR UNKNOWN INDICATION
     Route: 065
     Dates: start: 20090731, end: 20090803
  2. ACETAMINOPHEN [Concomitant]
  3. NUROFEN [Concomitant]

REACTIONS (5)
  - CONVULSION [None]
  - FEELING ABNORMAL [None]
  - RASH GENERALISED [None]
  - SLEEP TERROR [None]
  - VOMITING [None]
